FAERS Safety Report 8812706 (Version 2)
Quarter: 2012Q4

REPORT INFORMATION
  Report Type: 
  Country: FI (occurrence: FI)
  Receive Date: 20120927
  Receipt Date: 20121119
  Transmission Date: 20130627
  Serious: Yes (Hospitalization)
  Sender: FDA-Public Use
  Company Number: FI-ELI_LILLY_AND_COMPANY-FI201209004370

PATIENT
  Age: 18 Year
  Sex: Female

DRUGS (2)
  1. BYETTA [Suspect]
     Indication: BLOOD GLUCOSE INCREASED
     Dosage: 5 ug, bid
     Route: 058
     Dates: start: 201205, end: 20120829
  2. METFORMIN [Concomitant]
     Indication: DIABETES MELLITUS
     Dosage: 500 mg, each evening

REACTIONS (3)
  - Migraine [Unknown]
  - Migraine [Unknown]
  - Hypoglycaemia [Recovered/Resolved]
